FAERS Safety Report 18113323 (Version 1)
Quarter: 2020Q3

REPORT INFORMATION
  Report Type: Spontaneous
  Country: US (occurrence: US)
  Receive Date: 20200805
  Receipt Date: 20200805
  Transmission Date: 20201103
  Serious: No
  Sender: FDA-Public Use
  Company Number: US-PFIZER INC-2020294423

PATIENT
  Age: 72 Year
  Sex: Male
  Weight: 81.65 kg

DRUGS (2)
  1. KEYTRUDA [Concomitant]
     Active Substance: PEMBROLIZUMAB
     Dosage: UNK, EVERY 3 WEEKS (EVERY 3 WEEKS AN IV MEDICATION)
     Route: 042
  2. INLYTA [Suspect]
     Active Substance: AXITINIB
     Indication: NEOPLASM MALIGNANT
     Dosage: 5 MG, 2X/DAY (TWICE DAILY)
     Route: 048

REACTIONS (3)
  - Diarrhoea [Unknown]
  - Ageusia [Unknown]
  - Nausea [Unknown]
